FAERS Safety Report 6459130-5 (Version None)
Quarter: 2009Q4

REPORT INFORMATION
  Report Type: 
  Country: None (occurrence: None)
  Receive Date: 20091127
  Receipt Date: 20091119
  Transmission Date: 20100525
  Serious: Yes (Life-Threatening)
  Sender: FDA-Public Use
  Company Number: JP-BRISTOL-MYERS SQUIBB COMPANY-14848659

PATIENT
  Age: 54 Year
  Sex: Female
  Weight: 37 kg

DRUGS (4)
  1. BRIPLATIN [Suspect]
     Indication: CERVIX CARCINOMA
     Dosage: 52 MG ONCE WEEKLY
     Route: 041
     Dates: start: 20031125
  2. RADIOTHERAPY [Suspect]
     Indication: CERVIX CARCINOMA
     Dosage: 1 DF=GY, 50 GY (25 FRACTIONS), 18 GY(3 FRACTIONS), 45 GY(25 FRACTIONS)-POSTOPERATIVELY
     Dates: start: 20031120, end: 20031226
  3. GRANISETRON HCL [Concomitant]
     Indication: PROPHYLAXIS OF NAUSEA AND VOMITING
     Dosage: INJ
     Route: 041
  4. FUROSEMIDE [Concomitant]
     Indication: URINE OUTPUT INCREASED
     Route: 042

REACTIONS (1)
  - HYPONATRAEMIA [None]
